FAERS Safety Report 7094080-5 (Version None)
Quarter: 2010Q4

REPORT INFORMATION
  Report Type: 
  Country: None (occurrence: None)
  Receive Date: 20101110
  Receipt Date: 20100125
  Transmission Date: 20110411
  Serious: No
  Sender: FDA-Public Use
  Company Number: US-PFIZER INC-2010013001

PATIENT
  Sex: Female
  Weight: 70.3 kg

DRUGS (4)
  1. XANAX XR [Suspect]
     Dosage: 1 MG, 1X/DAY
     Route: 048
  2. SEROQUEL [Concomitant]
     Dosage: 50 MG, 1X/DAY
  3. AMBIEN [Concomitant]
     Dosage: 5 MG, UNK
  4. ADDERALL 10 [Concomitant]
     Dosage: 20 MG, UNK

REACTIONS (8)
  - ANXIETY [None]
  - BLOOD CHOLESTEROL INCREASED [None]
  - FORMICATION [None]
  - NAUSEA [None]
  - STRESS [None]
  - THINKING ABNORMAL [None]
  - WEIGHT INCREASED [None]
  - WITHDRAWAL SYNDROME [None]
